FAERS Safety Report 9156923 (Version 2)
Quarter: 2013Q1

REPORT INFORMATION
  Report Type: Report from Study
  Country: AU (occurrence: AU)
  Receive Date: 20130312
  Receipt Date: 20130329
  Transmission Date: 20140127
  Serious: Yes (Hospitalization, Disabling, Other)
  Sender: FDA-Public Use
  Company Number: PHHY2013AU022829

PATIENT
  Age: 57 Year
  Sex: Male
  Weight: 72 kg

DRUGS (19)
  1. CLOZARIL (CLOZAPINE) [Suspect]
     Indication: SCHIZOPHRENIA
     Dosage: 450 MG, QD
     Route: 048
     Dates: start: 19970213
  2. CLOZARIL (CLOZAPINE) [Suspect]
     Dosage: 400 MG, QD
     Route: 048
  3. CLOZARIL (CLOZAPINE) [Suspect]
     Dosage: 100 MG, 4 TABLETS AT DINNER
  4. FLUPENTHIXOL [Concomitant]
     Indication: SCHIZOPHRENIA
     Dosage: 100 MG, UNK
     Route: 030
  5. LITHIUM [Concomitant]
     Indication: MOOD SWINGS
     Dosage: 750 MG, QD
     Route: 048
  6. LAMOTRIGIN [Concomitant]
     Indication: EPILEPSY
     Dosage: 400 MG, QD
     Route: 048
  7. THYROXIN [Concomitant]
     Dosage: 50 MG, QD
     Route: 048
  8. PERICYAZINE [Concomitant]
     Indication: AGITATION
     Dosage: 2.5 MG, QD
     Route: 048
  9. PERICYAZINE [Concomitant]
     Dosage: 12.5 MG, QD
     Route: 048
  10. LITHICARB [Concomitant]
     Dosage: 250 MG, 2 MORNING AND 1 AT DINNER
  11. EUTROXSIG [Concomitant]
     Dosage: 50 UG, ONE IN MORNING
  12. SELEMITE B [Concomitant]
     Dosage: 100 UG, HALF IN THE MORNING
  13. SOMAC [Concomitant]
     Dosage: 40 MG, 1 TABLET AT NIGHT
  14. NEULACTIL [Concomitant]
     Dosage: 2.5 MG, 1 IN THE MORNING
  15. NEULACTIL [Concomitant]
     Dosage: 10 MG, 1 TABLET AT NIGHT
  16. LAMIDUS [Concomitant]
     Dosage: 200 MG, ONE TWICE DAILY
  17. VITA-D [Concomitant]
     Dosage: 1000 IU, 4 LUNCH
  18. BIOGLAN [Concomitant]
     Dosage: 1000 MG, ONE TWICE DAILY
  19. FLUANXOL ^FISONS^ [Concomitant]
     Dosage: 100 MG/ML, DEPOT

REACTIONS (8)
  - Toxicity to various agents [Unknown]
  - Myoclonus [Not Recovered/Not Resolved]
  - Grand mal convulsion [Recovering/Resolving]
  - Loss of consciousness [Unknown]
  - Muscle rigidity [Unknown]
  - Dyskinesia [Unknown]
  - Depression [Unknown]
  - Headache [Unknown]
